FAERS Safety Report 19674693 (Version 1)
Quarter: 2021Q3

REPORT INFORMATION
  Report Type: Spontaneous
  Country: BR (occurrence: BR)
  Receive Date: 20210809
  Receipt Date: 20210809
  Transmission Date: 20211014
  Serious: Yes (Death, Other)
  Sender: FDA-Public Use
  Company Number: BR-BAYER-2021-187116

PATIENT
  Sex: Male

DRUGS (2)
  1. XOFIGO [Suspect]
     Active Substance: RADIUM RA-223 DICHLORIDE
     Indication: METASTASES TO BONE
  2. XOFIGO [Suspect]
     Active Substance: RADIUM RA-223 DICHLORIDE
     Indication: HORMONE-REFRACTORY PROSTATE CANCER
     Dosage: UNK
     Route: 042
     Dates: start: 202007, end: 202012

REACTIONS (8)
  - Metastases to abdominal cavity [None]
  - Hormone-refractory prostate cancer [Fatal]
  - Blood alkaline phosphatase increased [None]
  - Pain [None]
  - Prostatic specific antigen increased [None]
  - Metastases to lung [None]
  - General physical health deterioration [Fatal]
  - Metastases to bone [None]

NARRATIVE: CASE EVENT DATE: 202008
